FAERS Safety Report 5362907-0 (Version None)
Quarter: 2007Q2

REPORT INFORMATION
  Report Type: 
  Country: None (occurrence: None)
  Receive Date: 20070615
  Receipt Date: 20070601
  Transmission Date: 20071010
  Serious: Yes (Hospitalization)
  Sender: FDA-Public Use
  Company Number: 2007US001336

PATIENT
  Age: 21 Year
  Sex: Male

DRUGS (3)
  1. PROGRAF [Suspect]
     Indication: LUNG TRANSPLANT REJECTION
  2. PREDNISONE TAB [Suspect]
     Indication: LUNG TRANSPLANT REJECTION
  3. AZATHIOPRINE [Suspect]
     Indication: LUNG TRANSPLANT REJECTION

REACTIONS (7)
  - BLEPHAROSPASM [None]
  - CEREBRAL ASPERGILLOSIS [None]
  - EYE PAIN [None]
  - FUNGAL ABSCESS CENTRAL NERVOUS SYSTEM [None]
  - NAUSEA [None]
  - PHOTOPHOBIA [None]
  - PSEUDOMONAS INFECTION [None]
